FAERS Safety Report 6976891-7 (Version None)
Quarter: 2010Q3

REPORT INFORMATION
  Report Type: 
  Country: None (occurrence: None)
  Receive Date: 20100910
  Receipt Date: 20100901
  Transmission Date: 20110219
  Serious: Yes (Hospitalization)
  Sender: FDA-Public Use
  Company Number: B0674082A

PATIENT
  Age: 46 Year
  Sex: Male

DRUGS (13)
  1. AMOXICILLIN [Suspect]
     Route: 048
  2. CYCLOSPORINE [Concomitant]
  3. METHYLPREDNISOLONE [Concomitant]
  4. CEFUROXIME [Concomitant]
  5. ACYCLOVIR [Concomitant]
  6. FLUCONAZOLE [Concomitant]
  7. OMEPRAZOLE [Concomitant]
  8. ALLOPURINOL [Concomitant]
  9. UNKNOWN DRUG [Concomitant]
  10. CHEMOTHERAPY [Concomitant]
     Indication: MULTIPLE MYELOMA
     Dates: start: 20040101
  11. STEM CELL TRANSPLANT [Concomitant]
     Indication: MULTIPLE MYELOMA
     Dates: start: 20050501
  12. FLUDARABINE [Concomitant]
  13. MELPHALAN [Concomitant]

REACTIONS (14)
  - ACUTE GENERALISED EXANTHEMATOUS PUSTULOSIS [None]
  - C-REACTIVE PROTEIN [None]
  - C-REACTIVE PROTEIN INCREASED [None]
  - LEUKOCYTOSIS [None]
  - OEDEMA [None]
  - ONYCHOLYSIS [None]
  - PYREXIA [None]
  - RASH [None]
  - RASH PRURITIC [None]
  - RASH PUSTULAR [None]
  - SCAB [None]
  - SKIN EXFOLIATION [None]
  - TRANSAMINASES INCREASED [None]
  - WHITE BLOOD CELL COUNT INCREASED [None]
